FAERS Safety Report 6532973-5 (Version None)
Quarter: 2010Q1

REPORT INFORMATION
  Report Type: 
  Country: None (occurrence: None)
  Receive Date: 20100111
  Receipt Date: 20091223
  Transmission Date: 20100710
  Serious: Yes (Other)
  Sender: FDA-Public Use
  Company Number: US-SANOFI-AVENTIS-2009SA001367

PATIENT
  Age: 65 Year
  Sex: Female

DRUGS (4)
  1. OPTICLICK [Suspect]
     Dates: start: 20070101
  2. APIDRA [Suspect]
     Dosage: SLIDING SCALE
     Route: 058
     Dates: start: 20070101
  3. LANTUS [Suspect]
     Route: 058
  4. SOLOSTAR [Suspect]

REACTIONS (1)
  - BLOOD GLUCOSE FLUCTUATION [None]
